FAERS Safety Report 16316252 (Version 1)
Quarter: 2019Q2

REPORT INFORMATION
  Report Type: Spontaneous
  Country: US (occurrence: US)
  Receive Date: 20190515
  Receipt Date: 20190515
  Transmission Date: 20190711
  Serious: No
  Sender: FDA-Public Use
  Company Number: US-SA-2019SA128904

PATIENT
  Age: 22 Year
  Sex: Female
  Weight: 81.63 kg

DRUGS (2)
  1. HYDROCORTISONE ACETATE. [Concomitant]
     Active Substance: HYDROCORTISONE ACETATE
     Dosage: UNK
  2. DUPIXENT [Suspect]
     Active Substance: DUPILUMAB
     Indication: DERMATITIS ATOPIC
     Dosage: 300 MG, QOW
     Route: 058
     Dates: start: 20180201

REACTIONS (1)
  - Dermatitis atopic [Recovered/Resolved]

NARRATIVE: CASE EVENT DATE: 2019
